FAERS Safety Report 7292542-9 (Version None)
Quarter: 2011Q1

REPORT INFORMATION
  Report Type: 
  Country: None (occurrence: None)
  Receive Date: 20110215
  Receipt Date: 20110208
  Transmission Date: 20110831
  Serious: Yes (Other)
  Sender: FDA-Public Use
  Company Number: US-BAYER-2011-013539

PATIENT
  Age: 30 Year
  Sex: Female
  Weight: 72.562 kg

DRUGS (1)
  1. BACTINE PAIN RELIEVING CLEANSING ANESTHETIC SPRAY [Suspect]
     Dosage: COUNT BOTTLE 5OZ
     Route: 047

REACTIONS (2)
  - VISUAL IMPAIRMENT [None]
  - EYE IRRITATION [None]
